FAERS Safety Report 17818401 (Version 1)
Quarter: 2020Q2

REPORT INFORMATION
  Report Type: Spontaneous
  Country: SK (occurrence: SK)
  Receive Date: 20200523
  Receipt Date: 20200523
  Transmission Date: 20200714
  Serious: Yes (Death, Hospitalization)
  Sender: FDA-Public Use
  Company Number: SK-INCYTE CORPORATION-2020IN004680

PATIENT

DRUGS (2)
  1. JAKAVI [Suspect]
     Active Substance: RUXOLITINIB
     Indication: MYELOFIBROSIS
     Dosage: UNK
     Route: 065
     Dates: start: 2016, end: 201803
  2. HYDROXYUREA. [Concomitant]
     Active Substance: HYDROXYUREA
     Indication: MYELOFIBROSIS
     Dosage: UNK
     Route: 065
     Dates: start: 2004

REACTIONS (5)
  - Femoral neck fracture [Fatal]
  - Myelofibrosis [Fatal]
  - Squamous cell carcinoma of skin [Fatal]
  - Basal cell carcinoma [Fatal]
  - Procedural complication [Fatal]

NARRATIVE: CASE EVENT DATE: 2018
